FAERS Safety Report 10502267 (Version 2)
Quarter: 2014Q4

REPORT INFORMATION
  Report Type: Spontaneous
  Country: JP (occurrence: JP)
  Receive Date: 20141007
  Receipt Date: 20141103
  Transmission Date: 20150528
  Serious: Yes (Other)
  Sender: FDA-Public Use
  Company Number: JP-TEVA-513604ISR

PATIENT
  Age: 20 Year
  Sex: Male
  Weight: 61 kg

DRUGS (6)
  1. MYCOPHENOLIC ACID. [Suspect]
     Active Substance: MYCOPHENOLIC ACID
     Indication: IMMUNOSUPPRESSANT DRUG THERAPY
     Dosage: 500 MILLIGRAM DAILY;
     Route: 065
  2. MYCOPHENOLIC ACID. [Suspect]
     Active Substance: MYCOPHENOLIC ACID
     Indication: IMMUNOSUPPRESSANT DRUG THERAPY
     Dosage: 1000 MILLIGRAM DAILY; 1,000 MG/DAY AND REDUCED AGAIN ON THE NEXT DAY TO 500 MG/DAY
     Route: 065
  3. RITUXIMAB [Suspect]
     Active Substance: RITUXIMAB
     Indication: IMMUNOSUPPRESSANT DRUG THERAPY
     Dosage: 300MG
     Route: 065
  4. MYCOPHENOLIC ACID. [Suspect]
     Active Substance: MYCOPHENOLIC ACID
     Indication: IMMUNOSUPPRESSANT DRUG THERAPY
     Dosage: 2000 MILLIGRAM DAILY;
     Route: 065
  5. TACROLIMUS. [Suspect]
     Active Substance: TACROLIMUS
     Indication: IMMUNOSUPPRESSANT DRUG THERAPY
     Dosage: 6 MILLIGRAM DAILY; (0.1 MG/KG/DAY)
     Route: 065
  6. PREDNISOLONE. [Suspect]
     Active Substance: PREDNISOLONE
     Indication: IMMUNOSUPPRESSANT DRUG THERAPY
     Dosage: 25 MILLIGRAM DAILY;
     Route: 065

REACTIONS (5)
  - Agranulocytosis [Unknown]
  - Cytomegalovirus gastroenteritis [Unknown]
  - Pseudomonas infection [Unknown]
  - Alopecia [Unknown]
  - Diarrhoea [Unknown]
